FAERS Safety Report 12387256 (Version 1)
Quarter: 2016Q2

REPORT INFORMATION
  Report Type: Not Available
  Country: US (occurrence: US)
  Receive Date: 20160519
  Receipt Date: 20160519
  Transmission Date: 20160815
  Serious: Yes (Other)
  Sender: FDA-Public Use
  Company Number: US-3M-2016-US-003141

PATIENT
  Age: 71 Year
  Sex: Male
  Weight: 84.82 kg

DRUGS (1)
  1. PERIDEX [Suspect]
     Active Substance: CHLORHEXIDINE GLUCONATE
     Dosage: UNKNOWN
     Route: 048
     Dates: start: 20160122, end: 20160125

REACTIONS (3)
  - Dysgeusia [Unknown]
  - Hunger [Not Recovered/Not Resolved]
  - Weight decreased [Unknown]

NARRATIVE: CASE EVENT DATE: 20160123
